FAERS Safety Report 5495398-X (Version None)
Quarter: 2007Q4

REPORT INFORMATION
  Report Type: 
  Country: None (occurrence: None)
  Receive Date: 20071024
  Receipt Date: 20071017
  Transmission Date: 20080405
  Serious: Yes (Life-Threatening, Other)
  Sender: FDA-Public Use
  Company Number: US-GENENTECH-247263

PATIENT
  Age: 8 Year
  Sex: Male

DRUGS (9)
  1. XOLAIR [Suspect]
     Indication: ASTHMA
     Dosage: 300 UNK, Q2W
     Route: 058
     Dates: start: 20051128, end: 20070820
  2. NASACORT [Concomitant]
     Indication: ASTHMA
     Dosage: UNK, QD
     Route: 045
     Dates: start: 20060920
  3. NASACORT [Concomitant]
     Indication: RHINITIS ALLERGIC
  4. ALLEGRA [Concomitant]
     Indication: RHINITIS ALLERGIC
     Dosage: 120 MG, UNK
     Route: 048
     Dates: start: 20050720
  5. PULMICORT TH [Concomitant]
     Indication: ASTHMA
     Dosage: 2 PUFF, BID
     Dates: start: 20051001
  6. SINGULAIR [Concomitant]
     Indication: ASTHMA
     Dosage: 5 MG, QD
     Route: 048
     Dates: start: 20030601
  7. SINGULAIR [Concomitant]
     Indication: RHINITIS ALLERGIC
  8. ALBUTEROL [Concomitant]
     Indication: ASTHMA
     Dosage: 2 PUFF, PRN
     Dates: start: 20050727
  9. ASTELIN [Concomitant]
     Indication: RHINITIS ALLERGIC
     Dosage: 1 UNK, QD
     Route: 045
     Dates: start: 20050321

REACTIONS (4)
  - ANAPHYLACTIC REACTION [None]
  - BLOOD PRESSURE DECREASED [None]
  - DIZZINESS [None]
  - VOMITING [None]
